FAERS Safety Report 9476918 (Version 8)
Quarter: 2014Q1

REPORT INFORMATION
  Report Type: Report from Study
  Country: CA (occurrence: CA)
  Receive Date: 20130826
  Receipt Date: 20140306
  Transmission Date: 20141002
  Serious: Yes (Death, Hospitalization)
  Sender: FDA-Public Use
  Company Number: CA-GLAXOSMITHKLINE-Z0021008A

PATIENT
  Age: 75 Year
  Sex: Female
  Weight: 64.2 kg

DRUGS (2)
  1. DABRAFENIB [Suspect]
     Indication: METASTATIC MALIGNANT MELANOMA
     Dosage: 150MG TWICE PER DAY
     Route: 048
     Dates: start: 20110623, end: 20130819
  2. SYNTHROID [Concomitant]

REACTIONS (4)
  - Renal failure [Fatal]
  - Diarrhoea [Recovered/Resolved]
  - Blood bilirubin increased [Recovering/Resolving]
  - Dehydration [Not Recovered/Not Resolved]
